FAERS Safety Report 6357560-3 (Version None)
Quarter: 2009Q3

REPORT INFORMATION
  Report Type: 
  Country: None (occurrence: None)
  Receive Date: 20090916
  Receipt Date: 20090902
  Transmission Date: 20100115
  Serious: Yes (Other)
  Sender: FDA-Public Use
  Company Number: PHHY2009FR37925

PATIENT
  Age: 66 Year
  Sex: Female

DRUGS (1)
  1. LAMISIL [Suspect]
     Indication: ONYCHOMYCOSIS
     Dosage: 1 DF, QD

REACTIONS (4)
  - AGEUSIA [None]
  - DECREASED APPETITE [None]
  - HEPATITIS [None]
  - MYALGIA [None]
